FAERS Safety Report 5259875-9 (Version None)
Quarter: 2007Q1

REPORT INFORMATION
  Report Type: 
  Country: None (occurrence: None)
  Receive Date: 20070306
  Receipt Date: 20070218
  Transmission Date: 20070707
  Serious: Yes (Hospitalization, Other)
  Sender: FDA-Public Use
  Company Number: 236844

PATIENT
  Age: 73 Year
  Sex: Male
  Weight: 70 kg

DRUGS (6)
  1. AVASTIN [Suspect]
     Indication: COLON CANCER METASTATIC
     Dosage: 350 MG, Q2W, INTRAVENOUS
     Route: 042
     Dates: start: 20060927, end: 20061115
  2. ATACAND [Concomitant]
  3. GLIPIZIDE [Concomitant]
  4. DOXAZOSIN MESYLATE (DOXAZSIN MESYLATE) [Concomitant]
  5. BIGUANIDES (BIGUANIDES NOS) [Concomitant]
  6. GLUCOPHAGE [Concomitant]

REACTIONS (2)
  - GASTRIC ULCER [None]
  - HAEMATEMESIS [None]
